FAERS Safety Report 25052576 (Version 1)
Quarter: 2025Q1

REPORT INFORMATION
  Report Type: Spontaneous
  Country: US (occurrence: US)
  Receive Date: 20250307
  Receipt Date: 20250307
  Transmission Date: 20250409
  Serious: No
  Sender: HILL DERMACEUTICALS, INC.
  Company Number: US-Hill Dermaceuticals, Inc.-2172485

PATIENT
  Age: 23 Year
  Sex: Female

DRUGS (1)
  1. FLUOCINOLONE [Suspect]
     Active Substance: FLUOCINOLONE
     Indication: Product used for unknown indication

REACTIONS (1)
  - Therapeutic product ineffective [Unknown]
